FAERS Safety Report 9668366 (Version 2)
Quarter: 2013Q4

REPORT INFORMATION
  Report Type: Report from Study
  Country: CL (occurrence: CL)
  Receive Date: 20131104
  Receipt Date: 20131104
  Transmission Date: 20140711
  Serious: Yes (Other)
  Sender: FDA-Public Use
  Company Number: PHHY2013CL120720

PATIENT
  Sex: Female

DRUGS (2)
  1. LEPONEX [Suspect]
     Dosage: UNK
  2. LEPONEX [Suspect]
     Dosage: 300 MG, DAILY

REACTIONS (3)
  - Psychotic disorder [Recovered/Resolved]
  - Condition aggravated [Unknown]
  - Stress [Unknown]
